FAERS Safety Report 11605641 (Version 3)
Quarter: 2015Q4

REPORT INFORMATION
  Report Type: Spontaneous
  Country: US (occurrence: US)
  Receive Date: 20151007
  Receipt Date: 20151021
  Transmission Date: 20160304
  Serious: Yes (Other)
  Sender: FDA-Public Use
  Company Number: US-WEST-WARD PHARMACEUTICALS CORP.-US-H14001-15-01750

PATIENT
  Age: 29 Year
  Sex: Male

DRUGS (2)
  1. LORAZEPAM. [Suspect]
     Active Substance: LORAZEPAM
     Indication: ALCOHOL WITHDRAWAL SYNDROME
     Route: 041
  2. PROPYLENE GLYCOL [Suspect]
     Active Substance: PROPYLENE GLYCOL
     Indication: ALCOHOL WITHDRAWAL SYNDROME
     Route: 041

REACTIONS (3)
  - Hyperosmolar state [Recovered/Resolved]
  - Polyuria [Recovered/Resolved]
  - Toxicity to various agents [Recovered/Resolved]
